FAERS Safety Report 4439196-4 (Version None)
Quarter: 2004Q3

REPORT INFORMATION
  Report Type: 
  Country: None (occurrence: None)
  Receive Date: 20040831
  Receipt Date: 20040816
  Transmission Date: 20050211
  Serious: Yes (Hospitalization)
  Sender: FDA-Public Use
  Company Number: 04P-163-0270780-00

PATIENT
  Sex: Male
  Weight: 106.5953 kg

DRUGS (3)
  1. HUMIRA [Suspect]
     Indication: RHEUMATOID ARTHRITIS
     Dosage: 40 MG, 1 IN 2 WK, SUBCUTANEOUS
     Route: 058
     Dates: start: 20040201
  2. LEFLUNOMIDE [Concomitant]
  3. PREDNISONE [Concomitant]

REACTIONS (3)
  - BLOOD ELECTROLYTES INCREASED [None]
  - BLOOD GLUCOSE INCREASED [None]
  - CELLULITIS [None]
